FAERS Safety Report 25235666 (Version 1)
Quarter: 2025Q2

REPORT INFORMATION
  Report Type: Spontaneous
  Country: US (occurrence: US)
  Receive Date: 20250424
  Receipt Date: 20250424
  Transmission Date: 20250717
  Serious: Yes (Hospitalization, Other)
  Sender: FRESENIUS KABI
  Company Number: US-FreseniusKabi-FK202505936

PATIENT
  Age: 53 Year
  Sex: Male

DRUGS (3)
  1. NAFCILLIN [Suspect]
     Active Substance: NAFCILLIN SODIUM
     Indication: Staphylococcal bacteraemia
  2. GENTAMICIN [Concomitant]
     Active Substance: GENTAMICIN
     Indication: Staphylococcal bacteraemia
  3. DEXAMETHASONE [Concomitant]
     Active Substance: DEXAMETHASONE
     Indication: Staphylococcal bacteraemia

REACTIONS (1)
  - Drug-induced liver injury [Recovering/Resolving]
